FAERS Safety Report 5054426-6 (Version None)
Quarter: 2006Q3

REPORT INFORMATION
  Report Type: 
  Country: None (occurrence: None)
  Receive Date: 20060713
  Receipt Date: 20060627
  Transmission Date: 20061208
  Serious: Yes (Hospitalization, Disabling)
  Sender: FDA-Public Use
  Company Number: 2006PV016897

PATIENT
  Age: 73 Year
  Sex: Male
  Weight: 82.5547 kg

DRUGS (12)
  1. BYETTA [Suspect]
     Indication: DIABETES MELLITUS NON-INSULIN-DEPENDENT
     Dosage: 5 MCG; BID; SC
     Route: 058
     Dates: start: 20060427, end: 20060601
  2. METFORMIN [Concomitant]
  3. DIOVAN [Concomitant]
  4. ASPIRIN [Concomitant]
  5. FISH OIL [Concomitant]
  6. FLUNISOLIDE [Concomitant]
  7. GLYBURIDE [Concomitant]
  8. GLUCOSAMINE W/CHONDROITIN SULFATES [Concomitant]
  9. NICARDIPINE [Concomitant]
  10. NITROGLYCERIN [Concomitant]
  11. VIAGRA [Concomitant]
  12. ZOCOR [Concomitant]

REACTIONS (6)
  - APHASIA [None]
  - CEREBROVASCULAR ACCIDENT [None]
  - FATIGUE [None]
  - IRRITABILITY [None]
  - MOTOR DYSFUNCTION [None]
  - MUSCULAR WEAKNESS [None]
